FAERS Safety Report 6245206-4 (Version None)
Quarter: 2009Q2

REPORT INFORMATION
  Report Type: 
  Country: None (occurrence: None)
  Receive Date: 20090625
  Receipt Date: 20090619
  Transmission Date: 20091009
  Serious: Yes (Death, Hospitalization, Other)
  Sender: FDA-Public Use
  Company Number: PHHO2008ES01675

PATIENT
  Sex: Female

DRUGS (24)
  1. CYCLOSPORINE [Suspect]
     Indication: RENAL TRANSPLANT
     Dosage: 100 MG, TWICE DAILY
     Route: 048
     Dates: start: 20040220, end: 20040313
  2. DACLIZUMAB [Suspect]
     Indication: RENAL TRANSPLANT
     Dosage: 200 MG, ONCE/SINGLE
     Route: 042
     Dates: start: 20040219
  3. DACLIZUMAB [Suspect]
     Dosage: 100 MG, EVERY 2 WEEKS
     Dates: end: 20040304
  4. MYCOPHENOLATE MOFETIL [Suspect]
     Indication: RENAL TRANSPLANT
     Dosage: 1000 MG, TWICE DAILY
     Route: 048
     Dates: start: 20040219
  5. MYCOPHENOLATE MOFETIL [Suspect]
     Dosage: 1500 MG TWICE DAILY
     Route: 048
     Dates: start: 20040305
  6. MYCOPHENOLATE MOFETIL [Suspect]
     Dosage: 1000 MG TWICE DAILY
     Route: 048
     Dates: start: 20040309, end: 20040313
  7. PREDNISONE [Suspect]
     Indication: RENAL TRANSPLANT
     Dosage: 20 MG, QD
     Route: 048
     Dates: start: 20040220
  8. STEROIDS NOS [Suspect]
     Indication: IMMUNOSUPPRESSION
     Dosage: 250 MG DAILY
     Route: 042
     Dates: start: 20040219
  9. STEROIDS NOS [Suspect]
     Dosage: 125 MG ONCE DAILY
     Route: 042
     Dates: start: 20040220
  10. STEROIDS NOS [Suspect]
     Dosage: 20 MG ONCE DAILY
     Route: 048
     Dates: start: 20040221
  11. STEROIDS NOS [Suspect]
     Dosage: 250 MG ONCE DAILY
     Route: 042
     Dates: start: 20040304, end: 20040311
  12. SEPTRIN [Concomitant]
  13. MYCOSTATIN [Concomitant]
  14. CAOSINA [Concomitant]
  15. ARANESP [Concomitant]
  16. ENOXAPARIN SODIUM [Concomitant]
  17. AMIODARONE HCL [Concomitant]
  18. LEXATIN [Concomitant]
  19. AMIODARONE [Concomitant]
  20. TENORMIN [Concomitant]
  21. CEFAZOLIN [Concomitant]
  22. COTRIM [Concomitant]
  23. DARBEPOETIN ALFA [Concomitant]
  24. PRILOSEC [Concomitant]

REACTIONS (16)
  - ARRHYTHMIA [None]
  - ATRIAL FIBRILLATION [None]
  - DIARRHOEA [None]
  - DISCOMFORT [None]
  - HAEMODYNAMIC INSTABILITY [None]
  - KIDNEY TRANSPLANT REJECTION [None]
  - LEUKOPENIA [None]
  - NEPHRECTOMY [None]
  - PERINEAL ABSCESS [None]
  - PYELONEPHRITIS [None]
  - PYREXIA [None]
  - SEPSIS [None]
  - TACHYCARDIA [None]
  - THROMBOCYTOPENIA [None]
  - VOMITING [None]
  - WEIGHT DECREASED [None]
